FAERS Safety Report 6141657-7 (Version None)
Quarter: 2009Q2

REPORT INFORMATION
  Report Type: 
  Country: None (occurrence: None)
  Receive Date: 20090402
  Receipt Date: 20090402
  Transmission Date: 20091009
  Serious: Yes (Hospitalization)
  Sender: FDA-Public Use
  Company Number: Z0000782A

PATIENT
  Sex: Male
  Weight: 93.3 kg

DRUGS (4)
  1. OFATUMUMAB [Suspect]
     Dosage: 300MG SINGLE DOSE
     Route: 042
     Dates: start: 20090223, end: 20090223
  2. CHLORAMBUCIL [Suspect]
     Route: 048
     Dates: start: 20090224
  3. HYDROCORTISONE [Concomitant]
  4. ATROVENT [Concomitant]

REACTIONS (1)
  - RESPIRATORY TRACT INFECTION [None]
